FAERS Safety Report 23934931 (Version 1)
Quarter: 2024Q2

REPORT INFORMATION
  Report Type: Report from Study
  Country: US (occurrence: None)
  Receive Date: 20240604
  Receipt Date: 20240604
  Transmission Date: 20240716
  Serious: Yes (Other)
  Sender: FDA-Public Use
  Company Number: 2024A127223

PATIENT
  Sex: Male

DRUGS (1)
  1. CALQUENCE [Suspect]
     Active Substance: ACALABRUTINIB
     Indication: Chronic lymphocytic leukaemia
     Route: 048
     Dates: start: 20240306

REACTIONS (5)
  - Pleural effusion [Unknown]
  - Pain in extremity [Unknown]
  - Muscle twitching [Unknown]
  - Insomnia [Unknown]
  - Hypersensitivity [Unknown]
